FAERS Safety Report 25498865 (Version 1)
Quarter: 2025Q3

REPORT INFORMATION
  Report Type: Spontaneous
  Country: EU (occurrence: EU)
  Receive Date: 20250701
  Receipt Date: 20250701
  Transmission Date: 20251020
  Serious: Yes (Other)
  Sender: SANOFI AVENTIS
  Company Number: None

PATIENT
  Age: 17 Year
  Sex: Female
  Weight: 71 kg

DRUGS (16)
  1. PREDNISONE [Suspect]
     Active Substance: PREDNISONE
     Indication: Uveitis
     Dosage: 1 MG/KG, QD
     Route: 048
     Dates: start: 20230215
  2. PREDNISONE [Suspect]
     Active Substance: PREDNISONE
     Dosage: 25 MG, QD
     Route: 048
     Dates: start: 20231108
  3. PREDNISONE [Suspect]
     Active Substance: PREDNISONE
     Dates: start: 20250426
  4. DOXYCYCLINE [Suspect]
     Active Substance: DOXYCYCLINE
     Indication: Uveitis
  5. RIFAMPIN [Suspect]
     Active Substance: RIFAMPIN
     Indication: Uveitis
  6. DEXAMETHASONE [Suspect]
     Active Substance: DEXAMETHASONE
     Indication: Uveitis
  7. METHOTREXATE SODIUM [Suspect]
     Active Substance: METHOTREXATE SODIUM
     Indication: Uveitis
     Dosage: 15 MG, QW, ON WEDNESDAY
     Route: 058
     Dates: start: 202309
  8. REMICADE [Suspect]
     Active Substance: INFLIXIMAB
     Indication: Uveitis
     Dosage: 5 MG/KG, Q6W
     Route: 042
     Dates: start: 20240604
  9. REMICADE [Suspect]
     Active Substance: INFLIXIMAB
     Route: 042
     Dates: start: 20250324
  10. REMICADE [Suspect]
     Active Substance: INFLIXIMAB
     Route: 042
     Dates: start: 20250429
  11. REMICADE [Suspect]
     Active Substance: INFLIXIMAB
     Route: 042
     Dates: start: 20250606
  12. ATROPINE [Suspect]
     Active Substance: ATROPINE
     Indication: Uveitis
  13. DEXAMETHASONE\OXYTETRACYCLINE [Suspect]
     Active Substance: DEXAMETHASONE\OXYTETRACYCLINE
     Indication: Uveitis
  14. FOLIC ACID [Concomitant]
     Active Substance: FOLIC ACID
  15. DESOGESTREL [Concomitant]
     Active Substance: DESOGESTREL
  16. ACETAMINOPHEN [Concomitant]
     Active Substance: ACETAMINOPHEN

REACTIONS (2)
  - Hepatic cytolysis [Not Recovered/Not Resolved]
  - Off label use [Unknown]

NARRATIVE: CASE EVENT DATE: 20230215
